FAERS Safety Report 26034974 (Version 1)
Quarter: 2025Q4

REPORT INFORMATION
  Report Type: Spontaneous
  Country: US (occurrence: None)
  Receive Date: 20251112
  Receipt Date: 20251112
  Transmission Date: 20260117
  Serious: Yes (Other)
  Sender: FDA-CTU
  Company Number: None

PATIENT
  Age: 32 Year
  Sex: Female

DRUGS (1)
  1. NEMLUVIO [Suspect]
     Active Substance: NEMOLIZUMAB-ILTO
     Indication: Dermatitis atopic
     Dosage: FREQUENCY : ONCE;?
     Route: 058
     Dates: start: 20251008, end: 20251104

REACTIONS (3)
  - Erythema [None]
  - Swelling face [None]
  - Feeling hot [None]

NARRATIVE: CASE EVENT DATE: 20251027
